FAERS Safety Report 4692275-9 (Version None)
Quarter: 2005Q2

REPORT INFORMATION
  Report Type: 
  Country: None (occurrence: None)
  Receive Date: 20050614
  Receipt Date: 20050602
  Transmission Date: 20051028
  Serious: Yes (Hospitalization, Disabling, Other)
  Sender: FDA-Public Use
  Company Number: GBWYE714902JUN05

PATIENT
  Age: 48 Year
  Sex: Female

DRUGS (2)
  1. ADVIL [Suspect]
     Indication: ANALGESIC EFFECT
     Dosage: 200MG, ORAL
     Route: 048
     Dates: start: 20040101, end: 20050505
  2. ALCOHOL (ETHANOL, , 0) [Suspect]
     Dosage: HALF A BOTTLE OF VODKA PER DAY ORAL
     Route: 048

REACTIONS (6)
  - BLOOD CREATININE INCREASED [None]
  - BLOOD UREA DECREASED [None]
  - EPIGASTRIC DISCOMFORT [None]
  - HAEMATEMESIS [None]
  - HAEMOGLOBIN DECREASED [None]
  - MELAENA [None]
